FAERS Safety Report 6692104-8 (Version None)
Quarter: 2010Q2

REPORT INFORMATION
  Report Type: 
  Country: None (occurrence: None)
  Receive Date: 20100422
  Receipt Date: 20090528
  Transmission Date: 20101027
  Serious: No
  Sender: FDA-Public Use
  Company Number: US-ASTRAZENECA-2009UW13648

PATIENT
  Sex: Male

DRUGS (1)
  1. TOPROL-XL [Suspect]
     Route: 048
     Dates: start: 20060101

REACTIONS (5)
  - AMNESIA [None]
  - CHEST DISCOMFORT [None]
  - GAIT DISTURBANCE [None]
  - INSOMNIA [None]
  - NIGHTMARE [None]
